FAERS Safety Report 12477511 (Version 2)
Quarter: 2016Q2

REPORT INFORMATION
  Report Type: Spontaneous
  Country: MY (occurrence: MY)
  Receive Date: 20160617
  Receipt Date: 20160623
  Transmission Date: 20160815
  Serious: Yes (Other)
  Sender: FDA-Public Use
  Company Number: MY-ABBVIE-16P-101-1651962-00

PATIENT

DRUGS (1)
  1. ZEMPLAR [Suspect]
     Active Substance: PARICALCITOL
     Indication: HYPERPARATHYROIDISM SECONDARY
     Dosage: 15 MCG EVERY DIALYSIS
     Route: 042
     Dates: start: 201510, end: 201604

REACTIONS (1)
  - Soft tissue sarcoma [Unknown]
